FAERS Safety Report 7561488-0 (Version None)
Quarter: 2011Q2

REPORT INFORMATION
  Report Type: 
  Country: None (occurrence: None)
  Receive Date: 20110621
  Receipt Date: 20110618
  Transmission Date: 20111010
  Serious: Yes (Hospitalization)
  Sender: FDA-Public Use
  Company Number: US-BRISTOL-MYERS SQUIBB COMPANY-15754443

PATIENT
  Age: 60 Year
  Sex: Male
  Weight: 88 kg

DRUGS (15)
  1. CALCIUM CARBONATE [Concomitant]
     Indication: MEDICAL DIET
     Route: 048
     Dates: start: 20000101
  2. GRAPESEED EXTRACT [Concomitant]
     Indication: PROPHYLAXIS
     Route: 048
     Dates: start: 20000101
  3. PROTONIX [Concomitant]
     Route: 048
  4. ZOFRAN [Concomitant]
     Route: 042
  5. TYLENOL-500 [Concomitant]
     Indication: PYREXIA
     Dosage: Q6 PRN
     Route: 048
  6. CLARITIN [Concomitant]
     Indication: HYPERSENSITIVITY
     Route: 048
     Dates: start: 20110311
  7. VITAMIN D [Concomitant]
     Indication: MEDICAL DIET
     Route: 048
     Dates: start: 20050101
  8. IPILIMUMAB [Suspect]
     Indication: MALIGNANT MELANOMA
     Route: 042
     Dates: start: 20100715, end: 20110516
  9. VITAMIN B COMPLEX CAP [Concomitant]
     Dosage: 1DF:4TABS
     Dates: start: 20100101
  10. PREDNISONE TAB [Concomitant]
     Route: 048
  11. MILK THISTLE [Concomitant]
     Indication: PROPHYLAXIS
     Route: 048
     Dates: start: 20000601
  12. SOLU-MEDROL [Concomitant]
     Route: 042
  13. COLACE [Concomitant]
     Dosage: Q12 PRN
     Route: 048
  14. LOVENOX [Concomitant]
     Route: 058
  15. AMBIEN [Concomitant]
     Indication: INSOMNIA
     Dosage: 1DF:12TABS
     Dates: start: 20100201

REACTIONS (2)
  - DEHYDRATION [None]
  - COLITIS [None]
